FAERS Safety Report 16483149 (Version 1)
Quarter: 2019Q2

REPORT INFORMATION
  Report Type: Spontaneous
  Country: IT (occurrence: IT)
  Receive Date: 20190627
  Receipt Date: 20190627
  Transmission Date: 20190711
  Serious: Yes (Hospitalization)
  Sender: FDA-Public Use
  Company Number: IT-PFIZER INC-2019271160

PATIENT
  Age: 34 Year
  Sex: Female

DRUGS (7)
  1. ROCURONIUM BROMIDE. [Suspect]
     Active Substance: ROCURONIUM BROMIDE
     Indication: ANAESTHESIA
     Dosage: 1 DF, TOTAL
     Route: 042
  2. FENTANYL CITRATE. [Suspect]
     Active Substance: FENTANYL CITRATE
     Indication: PAIN
     Dosage: 1 DF, 1X/DAY
     Route: 042
  3. DEXAMETHASONE SODIUM PHOSPHATE. [Suspect]
     Active Substance: DEXAMETHASONE SODIUM PHOSPHATE
     Indication: PREOPERATIVE HORMONE TREATMENT
     Dosage: 1 DF, TOTAL
     Route: 042
  4. KETOPROFEN. [Suspect]
     Active Substance: KETOPROFEN
     Indication: PAIN
     Dosage: 1 DF, 1X/DAY
     Route: 042
  5. SEVORANE [Suspect]
     Active Substance: SEVOFLURANE
     Indication: ANAESTHESIA
     Dosage: 1 DF, TOTAL
     Route: 055
  6. PROPOFOL KABI [Suspect]
     Active Substance: PROPOFOL
     Indication: ANAESTHESIA
     Dosage: 2 DF, TOTAL
     Route: 042
  7. ONDANSETRON [Suspect]
     Active Substance: ONDANSETRON
     Indication: VOMITING
     Dosage: 1 DF, 1X/DAY
     Route: 042

REACTIONS (5)
  - Hepatomegaly [Recovered/Resolved]
  - Tubulointerstitial nephritis [Recovered/Resolved]
  - Azotaemia [Recovered/Resolved]
  - Blood creatinine increased [Recovered/Resolved]
  - Hypervolaemia [Recovered/Resolved]

NARRATIVE: CASE EVENT DATE: 20190321
